FAERS Safety Report 8481893-8 (Version None)
Quarter: 2012Q2

REPORT INFORMATION
  Report Type: 
  Country: None (occurrence: None)
  Receive Date: 20120626
  Receipt Date: 20120626
  Transmission Date: 20120825
  Serious: Yes (Other)
  Sender: FDA-Public Use
  Company Number: None

PATIENT
  Sex: Female
  Weight: 86.637 kg

DRUGS (1)
  1. KLONOPIN [Suspect]
     Indication: SLEEP DISORDER
     Dosage: 1 TO 1 1/2 TABS AT BEDTIME PO
     Route: 048
     Dates: start: 19950101, end: 20120625

REACTIONS (2)
  - PRODUCT SUBSTITUTION ISSUE [None]
  - DRUG INEFFECTIVE [None]
